FAERS Safety Report 10235274 (Version 1)
Quarter: 2014Q2

REPORT INFORMATION
  Report Type: Spontaneous
  Country: US (occurrence: US)
  Receive Date: 20140613
  Receipt Date: 20140613
  Transmission Date: 20141212
  Serious: No
  Sender: FDA-Public Use
  Company Number: US-PFIZER INC-2014160357

PATIENT
  Age: 75 Year
  Sex: Female

DRUGS (2)
  1. SULFASALAZINE [Suspect]
     Dosage: UNK
  2. PLAQUENIL [Suspect]
     Dosage: UNK

REACTIONS (1)
  - Drug hypersensitivity [Unknown]
